FAERS Safety Report 22910374 (Version 5)
Quarter: 2024Q2

REPORT INFORMATION
  Report Type: Report from Study
  Country: CA (occurrence: CA)
  Receive Date: 20230906
  Receipt Date: 20240402
  Transmission Date: 20240716
  Serious: Yes (Hospitalization, Other)
  Sender: FDA-Public Use
  Company Number: CA-JNJFOC-20230752180

PATIENT
  Age: 68 Year
  Sex: Male

DRUGS (5)
  1. STELARA [Suspect]
     Active Substance: USTEKINUMAB
     Indication: Colitis ulcerative
     Route: 058
     Dates: start: 20211025
  2. STELARA [Suspect]
     Active Substance: USTEKINUMAB
     Route: 058
  3. STELARA [Suspect]
     Active Substance: USTEKINUMAB
     Dosage: REINDUCTION
     Route: 040
  4. STELARA [Suspect]
     Active Substance: USTEKINUMAB
     Route: 058
  5. MESALAMINE [Concomitant]
     Active Substance: MESALAMINE
     Indication: Product used for unknown indication
     Route: 065
     Dates: start: 2023

REACTIONS (3)
  - Cytomegalovirus infection [Recovered/Resolved]
  - Colitis ulcerative [Unknown]
  - Treatment failure [Unknown]

NARRATIVE: CASE EVENT DATE: 20230801
